FAERS Safety Report 4702438-1 (Version None)
Quarter: 2005Q2

REPORT INFORMATION
  Report Type: 
  Country: None (occurrence: None)
  Receive Date: 20050629
  Receipt Date: 20050616
  Transmission Date: 20051028
  Serious: Yes (Life-Threatening, Other)
  Sender: FDA-Public Use
  Company Number: US-BRISTOL-MYERS SQUIBB COMPANY-13016449

PATIENT
  Age: 64 Year
  Sex: Male

DRUGS (2)
  1. ERBITUX [Suspect]
     Indication: NEOPLASM MALIGNANT
     Route: 042
     Dates: start: 20050609, end: 20050609
  2. BENADRYL [Concomitant]
     Indication: PREMEDICATION
     Route: 042
     Dates: start: 20050609, end: 20050609

REACTIONS (2)
  - CARDIAC ARREST [None]
  - HYPERSENSITIVITY [None]
